FAERS Safety Report 4293337-0 (Version None)
Quarter: 2004Q1

REPORT INFORMATION
  Report Type: 
  Country: None (occurrence: None)
  Receive Date: 20040210
  Receipt Date: 20040202
  Transmission Date: 20041129
  Serious: Yes (Other)
  Sender: FDA-Public Use
  Company Number: ZONI001287

PATIENT
  Age: 5 Year
  Sex: Male

DRUGS (3)
  1. ZONEGRAN [Suspect]
     Indication: CONVULSION
     Dosage: 200 MG DAILY ORAL
     Route: 048
     Dates: start: 20030501
  2. KEPPRA [Suspect]
     Indication: CONVULSION
     Dosage: 625 MG DAILY ORAL
     Route: 048
     Dates: start: 20030501
  3. LAMICTAL [Concomitant]

REACTIONS (5)
  - AMNESIA [None]
  - ANHIDROSIS [None]
  - CONVULSION [None]
  - DECREASED APPETITE [None]
  - FATIGUE [None]
